FAERS Safety Report 7236488-0 (Version None)
Quarter: 2011Q1

REPORT INFORMATION
  Report Type: 
  Country: None (occurrence: None)
  Receive Date: 20110120
  Receipt Date: 20110112
  Transmission Date: 20110831
  Serious: Yes (Hospitalization)
  Sender: FDA-Public Use
  Company Number: US-WATSON-2011-00371

PATIENT
  Sex: Female
  Weight: 47.6 kg

DRUGS (2)
  1. FENTANYL-75 [Suspect]
     Indication: PAIN
     Dosage: 1 PATCH Q 48 HRS
     Route: 062
     Dates: start: 20080101, end: 20101201
  2. FENTANYL-100 [Suspect]
     Indication: PAIN
     Dosage: 1 PATCH Q 48 HRS
     Route: 062
     Dates: start: 20101229

REACTIONS (15)
  - FAECES DISCOLOURED [None]
  - RESTLESSNESS [None]
  - WITHDRAWAL SYNDROME [None]
  - DRUG INEFFECTIVE [None]
  - ARTERIAL OCCLUSIVE DISEASE [None]
  - FEMUR FRACTURE [None]
  - TACHYCARDIA [None]
  - FALL [None]
  - SHOCK [None]
  - DYSPNOEA [None]
  - GASTROINTESTINAL HAEMORRHAGE [None]
  - SKIN DISCOLOURATION [None]
  - FEELING COLD [None]
  - DISORIENTATION [None]
  - LOSS OF CONSCIOUSNESS [None]
